FAERS Safety Report 24853457 (Version 2)
Quarter: 2025Q1

REPORT INFORMATION
  Report Type: Spontaneous
  Country: US (occurrence: US)
  Receive Date: 20250117
  Receipt Date: 20250119
  Transmission Date: 20250409
  Serious: Yes (Death)
  Sender: ABBVIE
  Company Number: US-ABBVIE-6090017

PATIENT
  Age: 59 Year
  Sex: Female

DRUGS (1)
  1. RINVOQ [Suspect]
     Active Substance: UPADACITINIB
     Indication: Rheumatoid arthritis
     Route: 048
     Dates: start: 2022

REACTIONS (2)
  - Haemorrhagic stroke [Fatal]
  - Urticaria [Unknown]

NARRATIVE: CASE EVENT DATE: 20220101
